FAERS Safety Report 21415870 (Version 2)
Quarter: 2022Q4

REPORT INFORMATION
  Report Type: Spontaneous
  Country: US (occurrence: US)
  Receive Date: 20221006
  Receipt Date: 20221017
  Transmission Date: 20230113
  Serious: Yes (Hospitalization, Other)
  Sender: FDA-Public Use
  Company Number: US-MLMSERVICE-20220920-3808206-1

PATIENT
  Age: 67 Year
  Sex: Male

DRUGS (12)
  1. SERTRALINE [Suspect]
     Active Substance: SERTRALINE HYDROCHLORIDE
     Indication: Erectile dysfunction
     Dosage: 50 MILLIGRAM, DAILY RECENTLY D/C AT OSH
     Route: 065
  2. SERTRALINE [Suspect]
     Active Substance: SERTRALINE HYDROCHLORIDE
     Indication: Premature ejaculation
  3. BUPROPION [Suspect]
     Active Substance: BUPROPION
     Indication: Depression
     Dosage: 100 MILLIGRAM, BID ADDED AT OSH, SUSTAINED RELEASE (SR)
     Route: 048
  4. BUPROPION [Suspect]
     Active Substance: BUPROPION
     Indication: Suicidal ideation
  5. OLANZAPINE [Suspect]
     Active Substance: OLANZAPINE
     Indication: Mania
     Dosage: 5 MILLIGRAM, QD (AT BEDTIME)
     Route: 065
  6. OLANZAPINE [Suspect]
     Active Substance: OLANZAPINE
     Indication: Mood swings
     Dosage: 7.5 MILLIGRAM, QD (DOSE INCREASED ON DAY 5 AT BEDTIME)
     Route: 065
  7. ASPIRIN [Concomitant]
     Active Substance: ASPIRIN
     Indication: Product used for unknown indication
     Dosage: 81 MG DAILY
     Route: 065
  8. TAMSULOSIN [Concomitant]
     Active Substance: TAMSULOSIN
     Indication: Product used for unknown indication
     Dosage: 0.4 MILLIGRAM, QD (AT BEDTIME)
     Route: 065
  9. FAMOTIDINE [Concomitant]
     Active Substance: FAMOTIDINE
     Indication: Gastrooesophageal reflux disease
     Dosage: 20 MILLIGRAM, QD (AT BEDTIME), HS
     Route: 065
  10. VITAMINS NOS [Concomitant]
     Active Substance: VITAMINS
     Indication: Product used for unknown indication
     Dosage: UNK
     Route: 065
  11. SILDENAFIL [Concomitant]
     Active Substance: SILDENAFIL
     Indication: Product used for unknown indication
     Dosage: 100 MILLIGRAM, PRN (AS NEEDED)
     Route: 065
  12. ACETAMINOPHEN\DIPHENHYDRAMINE HYDROCHLORIDE [Concomitant]
     Active Substance: ACETAMINOPHEN\DIPHENHYDRAMINE HYDROCHLORIDE
     Indication: Insomnia
     Dosage: 500 MG/25 MG, PRN ( AS NEEDED)
     Route: 065

REACTIONS (4)
  - Drug-induced liver injury [Recovering/Resolving]
  - Mania [Unknown]
  - Off label use [Unknown]
  - Product use in unapproved indication [Unknown]
